FAERS Safety Report 5091555-5 (Version None)
Quarter: 2006Q3

REPORT INFORMATION
  Report Type: 
  Country: None (occurrence: None)
  Receive Date: 20060824
  Receipt Date: 20060816
  Transmission Date: 20061208
  Serious: Yes (Hospitalization)
  Sender: FDA-Public Use
  Company Number: 2006-08-1209

PATIENT
  Sex: Male

DRUGS (2)
  1. TEMODAR [Suspect]
     Indication: BRAIN NEOPLASM
     Dosage: 75 MG/M2 ORAL
     Route: 048
  2. RADIATION THERAPY [Concomitant]

REACTIONS (1)
  - INTERSTITIAL LUNG DISEASE [None]
